FAERS Safety Report 9605888 (Version 1)
Quarter: 2013Q4

REPORT INFORMATION
  Report Type: Spontaneous
  Country: US (occurrence: US)
  Receive Date: 20131008
  Receipt Date: 20131008
  Transmission Date: 20140711
  Serious: Yes (Hospitalization)
  Sender: FDA-Public Use
  Company Number: US-B.I. PHARMACEUTICALS,INC./RIDGEFIELD-2013-BI-31256BP

PATIENT
  Age: 78 Year
  Sex: Male

DRUGS (13)
  1. PRADAXA [Suspect]
     Indication: ATRIAL FIBRILLATION
     Dosage: 300 MG
     Route: 048
     Dates: start: 2011, end: 2012
  2. PRADAXA [Suspect]
     Dosage: 300 MG
     Route: 048
     Dates: start: 201305
  3. ASPIRIN [Concomitant]
     Route: 048
  4. COREG [Concomitant]
     Route: 048
  5. CRESTOR [Concomitant]
     Route: 048
  6. RANEXA [Concomitant]
     Route: 048
  7. MIRALAX [Concomitant]
     Route: 048
  8. LEVOTHYROXINE [Concomitant]
     Indication: THYROID DISORDER
     Route: 048
  9. NITROSTAT [Concomitant]
  10. FISH OIL [Concomitant]
     Route: 048
  11. AMIODARONE [Concomitant]
     Route: 048
  12. CALCIUM [Concomitant]
     Route: 048
  13. MAGNESIUM [Concomitant]
     Route: 048

REACTIONS (4)
  - Atrial fibrillation [Recovered/Resolved]
  - Amnesia [Not Recovered/Not Resolved]
  - Tooth injury [Recovered/Resolved]
  - Flatulence [Not Recovered/Not Resolved]
